FAERS Safety Report 6416339-4 (Version None)
Quarter: 2009Q4

REPORT INFORMATION
  Report Type: 
  Country: None (occurrence: None)
  Receive Date: 20091027
  Receipt Date: 20091022
  Transmission Date: 20100525
  Serious: Yes (Hospitalization, Other)
  Sender: FDA-Public Use
  Company Number: US-ELI_LILLY_AND_COMPANY-US200812002366

PATIENT
  Sex: Male
  Weight: 117.91 kg

DRUGS (32)
  1. BYETTA [Suspect]
     Dosage: 10 UG, 2/D
     Route: 065
     Dates: start: 20051105, end: 20070701
  2. AMITRIPTYLINE [Concomitant]
     Dosage: 20 MG, DAILY (1/D)
  3. GLIPIZIDE [Concomitant]
     Dosage: 5 MG, DAILY (1/D)
     Dates: end: 20060531
  4. GLIPIZIDE [Concomitant]
     Dosage: 10 MG, 2/D
     Dates: start: 20060531
  5. AVANDAMET [Concomitant]
     Dosage: UNK, 2/D
  6. NIASPAN [Concomitant]
     Dosage: 1000 MG, DAILY (1/D)
  7. GLIMEPIRIDE [Concomitant]
     Dosage: UNK, UNKNOWN
  8. CELEBREX [Concomitant]
     Dosage: 200 MG, DAILY (1/D)
  9. TESTOSTERONE [Concomitant]
     Dosage: UNK, 2/M
  10. VIGAMOX [Concomitant]
     Dosage: 1 GTT, 3/D
     Dates: start: 20060707
  11. BUSPIRONE HCL [Concomitant]
     Dosage: 7.5 MG, DAILY (1/D)
  12. AVANDIA [Concomitant]
     Dosage: UNK, UNKNOWN
  13. METHOCARBAMOL [Concomitant]
     Dosage: 500 MG, 3/D
  14. METFORMIN HCL [Concomitant]
     Dosage: UNK, UNKNOWN
  15. VICODIN [Concomitant]
     Dosage: UNK, UNKNOWN
  16. FENTANYL-100 [Concomitant]
     Dosage: 50 UG, AS NEEDED
  17. LOPID [Concomitant]
     Dosage: 600 MG, 2/D
  18. OXYCODONE [Concomitant]
     Dosage: 5 MG, UNKNOWN
     Route: 048
  19. OXYCODONE [Concomitant]
     Dosage: 80 MG, 2/D
     Route: 048
  20. VYTORIN [Concomitant]
     Dosage: UNK, DAILY (1/D)
  21. DULOXETINE [Concomitant]
     Dosage: 30 MG, DAILY (1/D)
     Dates: start: 20070713, end: 20080325
  22. DULOXETINE [Concomitant]
     Dosage: 60 MG, DAILY (1/D)
     Dates: start: 20080325
  23. LISINOPRIL [Concomitant]
     Dosage: 15 MG, DAILY (1/D)
     Dates: end: 20080325
  24. ZOLOFT [Concomitant]
     Dosage: 100 MG, EACH EVENING
     Dates: end: 20080325
  25. CIALIS [Concomitant]
     Dosage: UNK, UNKNOWN
  26. DELATESTRYL [Concomitant]
     Dosage: UNK, UNKNOWN
  27. ASPIRIN [Concomitant]
     Dosage: UNK, UNKNOWN
  28. XANAX [Concomitant]
     Dosage: UNK, AS NEEDED
     Dates: end: 20081125
  29. EFFEXOR [Concomitant]
     Dosage: 75 MG, UNKNOWN
     Dates: end: 20081125
  30. LANTUS [Concomitant]
     Dosage: UNK, UNKNOWN
  31. OXYGEN [Concomitant]
     Dosage: UNK, UNKNOWN
  32. TYLENOL SINUS [Concomitant]
     Dosage: UNK, UNKNOWN

REACTIONS (3)
  - BACK PAIN [None]
  - FALL [None]
  - PANCREATITIS [None]
